FAERS Safety Report 10606579 (Version 1)
Quarter: 2014Q4

REPORT INFORMATION
  Report Type: Spontaneous
  Country: US (occurrence: US)
  Receive Date: 20141125
  Receipt Date: 20141125
  Transmission Date: 20150529
  Serious: No
  Sender: FDA-Public Use
  Company Number: US-009507513-1411USA010149

PATIENT
  Sex: Male

DRUGS (2)
  1. DR. SCHOLL^S ODOR-X [Suspect]
     Active Substance: ZINC OXIDE
     Indication: SKIN ODOUR ABNORMAL
     Dosage: UNK, UNKNOWN
     Route: 061
  2. DR. SCHOLL^S ODOR-X [Suspect]
     Active Substance: ZINC OXIDE
     Indication: HYPERHIDROSIS

REACTIONS (1)
  - Therapeutic response decreased [Unknown]
